FAERS Safety Report 21290195 (Version 2)
Quarter: 2022Q3

REPORT INFORMATION
  Report Type: Spontaneous
  Country: US (occurrence: US)
  Receive Date: 20220902
  Receipt Date: 20220913
  Transmission Date: 20221027
  Serious: Yes (Other)
  Sender: FDA-Public Use
  Company Number: US-009507513-2208USA010755

PATIENT
  Age: 73 Year
  Sex: Male

DRUGS (6)
  1. TEMODAR [Suspect]
     Active Substance: TEMOZOLOMIDE
     Indication: Glioblastoma
     Dosage: 75 MILLIGRAM/SQ. METER, QD; CONTINUOUS WITH RADIOTHERAPY
     Route: 048
  2. TEMODAR [Suspect]
     Active Substance: TEMOZOLOMIDE
     Indication: Isocitrate dehydrogenase gene mutation
  3. TEMODAR [Suspect]
     Active Substance: TEMOZOLOMIDE
     Indication: BRCA1 gene mutation
  4. OLAPARIB [Suspect]
     Active Substance: OLAPARIB
     Indication: Glioblastoma
     Dosage: 150 MILLIGRAM, TIW; CONTINUOUS WITH RADIOTHERAPY
     Route: 048
  5. OLAPARIB [Suspect]
     Active Substance: OLAPARIB
     Indication: Isocitrate dehydrogenase gene mutation
  6. OLAPARIB [Suspect]
     Active Substance: OLAPARIB
     Indication: BRCA1 gene mutation

REACTIONS (2)
  - Product use issue [Unknown]
  - Fatigue [Unknown]
